FAERS Safety Report 17913311 (Version 1)
Quarter: 2020Q2

REPORT INFORMATION
  Report Type: Spontaneous
  Country: US (occurrence: US)
  Receive Date: 20200618
  Receipt Date: 20200618
  Transmission Date: 20200714
  Serious: No
  Sender: FDA-Public Use
  Company Number: US-BAUSCH-BL-2020-016874

PATIENT
  Age: 54 Year
  Sex: Female

DRUGS (2)
  1. LUMIFY [Suspect]
     Active Substance: BRIMONIDINE TARTRATE
     Indication: OCULAR HYPERAEMIA
     Dosage: START DATE: AROUND TWO WEEKS AGO,  1 DROP IN EACH EYE
     Route: 047
     Dates: start: 202005, end: 2020
  2. LUMIFY [Suspect]
     Active Substance: BRIMONIDINE TARTRATE
     Dosage: 1 DROP IN EACH OF HER EYES
     Route: 047
     Dates: start: 20200609, end: 20200609

REACTIONS (4)
  - Nasal discomfort [Recovered/Resolved]
  - Dizziness [Recovered/Resolved]
  - Headache [Recovered/Resolved]
  - Nausea [Recovered/Resolved]

NARRATIVE: CASE EVENT DATE: 202005
